FAERS Safety Report 5644450-4 (Version None)
Quarter: 2008Q1

REPORT INFORMATION
  Report Type: 
  Country: None (occurrence: None)
  Receive Date: 20080229
  Receipt Date: 20070104
  Transmission Date: 20080703
  Serious: No
  Sender: FDA-Public Use
  Company Number: A0634130A

PATIENT
  Age: 55 Year
  Sex: Female

DRUGS (6)
  1. VALTREX [Suspect]
     Indication: HERPES ZOSTER
     Route: 048
     Dates: start: 20070102
  2. THYROID TAB [Concomitant]
  3. BUPROPION HCL [Concomitant]
  4. ZYPREXA [Concomitant]
  5. FOSAMAX [Concomitant]
  6. CALCIUM [Concomitant]

REACTIONS (1)
  - GASTRIC DISORDER [None]
